FAERS Safety Report 10218550 (Version 1)
Quarter: 2014Q2

REPORT INFORMATION
  Report Type: Spontaneous
  Country: US (occurrence: US)
  Receive Date: 20140605
  Receipt Date: 20140605
  Transmission Date: 20141212
  Serious: No
  Sender: FDA-Public Use
  Company Number: US-009507513-1406USA001942

PATIENT
  Age: 22 Year
  Sex: Male
  Weight: 99.77 kg

DRUGS (1)
  1. CLARITIN-D-24 [Suspect]
     Indication: HYPERSENSITIVITY
     Dosage: 2 TABLETS IN 24 HOURS
     Route: 048

REACTIONS (1)
  - Overdose [Unknown]
